FAERS Safety Report 7191769-4 (Version None)
Quarter: 2010Q4

REPORT INFORMATION
  Report Type: 
  Country: None (occurrence: None)
  Receive Date: 20101223
  Receipt Date: 20100819
  Transmission Date: 20110411
  Serious: Yes (Hospitalization)
  Sender: FDA-Public Use
  Company Number: US-AMGEN-KDL432757

PATIENT

DRUGS (1)
  1. ENBREL [Suspect]
     Indication: RHEUMATOID ARTHRITIS
     Dosage: 25 MG, 2 TIMES/WK
     Route: 058

REACTIONS (14)
  - ARTHRITIS [None]
  - CHEST PAIN [None]
  - COUGH [None]
  - DRY MOUTH [None]
  - DYSGEUSIA [None]
  - DYSPNOEA [None]
  - INFLUENZA [None]
  - INSOMNIA [None]
  - JOINT ANKYLOSIS [None]
  - MYALGIA [None]
  - NASAL ULCER [None]
  - SINUSITIS [None]
  - SPUTUM DISCOLOURED [None]
  - STOMATITIS [None]
